FAERS Safety Report 4536320-X (Version None)
Quarter: 2004Q4

REPORT INFORMATION
  Report Type: 
  Country: None (occurrence: None)
  Receive Date: 20041223
  Receipt Date: 20040706
  Transmission Date: 20050328
  Serious: No
  Sender: FDA-Public Use
  Company Number: US-GLAXOSMITHKLINE-A0517082A

PATIENT
  Age: 30 Year
  Sex: Male

DRUGS (2)
  1. FLONASE [Suspect]
     Dosage: 1SPR TWICE PER DAY
     Route: 045
     Dates: start: 20040101
  2. NO CONCURRENT MEDICATION [Concomitant]

REACTIONS (4)
  - DEPRESSION [None]
  - FATIGUE [None]
  - HYPERSOMNIA [None]
  - THINKING ABNORMAL [None]
